FAERS Safety Report 4615385-0 (Version None)
Quarter: 2005Q1

REPORT INFORMATION
  Report Type: 
  Country: None (occurrence: None)
  Receive Date: 20050317
  Receipt Date: 20050307
  Transmission Date: 20050727
  Serious: Yes (Hospitalization)
  Sender: FDA-Public Use
  Company Number: 2005027424

PATIENT
  Age: 69 Year
  Sex: Male
  Weight: 52 kg

DRUGS (10)
  1. ALDACTONE [Suspect]
     Indication: ASCITES
     Dosage: 100 MG (50 MG , BID), ORAL
     Route: 048
     Dates: start: 20040705, end: 20050123
  2. PHENYTOIN [Suspect]
     Indication: EPILEPSY
     Dosage: 300 MG (100 MG, TID), ORAL
     Route: 048
     Dates: start: 20041130, end: 20050123
  3. NIFEDIPINE [Suspect]
     Indication: HYPERTENSION
     Dosage: 10 MG (10 MG, QD), ORAL
     Route: 048
     Dates: start: 20050114, end: 20050114
  4. NIFEDIPINE [Suspect]
     Indication: HYPERTENSION
     Dosage: 4 MG (2 MG, BID), ORAL
     Route: 048
     Dates: start: 20050114, end: 20050123
  5. VALSARTAN [Suspect]
     Indication: HYPERTENSION
     Dosage: 80 MG (80 MG, DAILY), ORAL
     Route: 047
     Dates: start: 20050118, end: 20050123
  6. CEFEPIME HYDROCHLORIDE (CEFEPIME HYDROCHLORIDE) [Suspect]
     Indication: INFECTION
     Dosage: 2 GRAM (1 GRAM, TWICE DAILY), INTRAVENOUS
     Route: 042
     Dates: start: 20050118, end: 20050120
  7. FUROSEMIDE [Suspect]
     Indication: ILL-DEFINED DISORDER
     Dosage: ORAL
     Route: 048
     Dates: start: 20040705
  8. MENATETRENONE (MENATETRENONE) [Concomitant]
  9. DIMETICONE (DIMETICONE) [Concomitant]
  10. LACTITOL (LACTITOL) [Concomitant]

REACTIONS (7)
  - CEREBRAL INFARCTION [None]
  - DRUG HYPERSENSITIVITY [None]
  - EPILEPSY [None]
  - HYPERTENSION [None]
  - INFECTION [None]
  - PAIN [None]
  - TOXIC EPIDERMAL NECROLYSIS [None]
